FAERS Safety Report 5247112-0 (Version None)
Quarter: 2007Q1

REPORT INFORMATION
  Report Type: 
  Country: None (occurrence: None)
  Receive Date: 20070226
  Receipt Date: 20070221
  Transmission Date: 20070707
  Serious: Yes (Hospitalization, Other)
  Sender: FDA-Public Use
  Company Number: US-MERCK-0509USA04012

PATIENT
  Age: 75 Year
  Sex: Female
  Weight: 52 kg

DRUGS (2)
  1. FOSAMAX [Suspect]
     Indication: OSTEOPOROSIS
     Route: 048
     Dates: start: 19970101, end: 20050701
  2. FOSAMAX PLUS D [Suspect]
     Route: 048

REACTIONS (10)
  - ANXIETY [None]
  - BACK PAIN [None]
  - BLADDER PROLAPSE [None]
  - FALL [None]
  - HEAD INJURY [None]
  - HYPERTENSION [None]
  - IMPAIRED HEALING [None]
  - LUMBAR VERTEBRAL FRACTURE [None]
  - MYOPATHY [None]
  - OSTEONECROSIS [None]
